FAERS Safety Report 15907119 (Version 1)
Quarter: 2019Q1

REPORT INFORMATION
  Report Type: Spontaneous
  Country: US (occurrence: US)
  Receive Date: 20190204
  Receipt Date: 20190204
  Transmission Date: 20190417
  Serious: No
  Sender: FDA-Public Use
  Company Number: US-PFIZER INC-2019041496

PATIENT
  Age: 60 Year
  Sex: Female
  Weight: 109.77 kg

DRUGS (5)
  1. GABAPENTIN. [Suspect]
     Active Substance: GABAPENTIN
     Indication: PARAESTHESIA
  2. GABAPENTIN. [Suspect]
     Active Substance: GABAPENTIN
     Indication: INTERVERTEBRAL DISC PROTRUSION
     Dosage: 600 MG, 2X/DAY (1 PILL BY MOUTH TWICE A DAY)
  3. GABAPENTIN. [Suspect]
     Active Substance: GABAPENTIN
     Indication: HYPOAESTHESIA
  4. GABAPENTIN. [Suspect]
     Active Substance: GABAPENTIN
     Indication: STENOSIS
  5. GABAPENTIN. [Suspect]
     Active Substance: GABAPENTIN
     Indication: ARTHRITIS

REACTIONS (1)
  - Drug ineffective for unapproved indication [Unknown]
